FAERS Safety Report 12945978 (Version 10)
Quarter: 2017Q2

REPORT INFORMATION
  Report Type: Report from Study
  Country: US (occurrence: US)
  Receive Date: 20161115
  Receipt Date: 20170621
  Transmission Date: 20170830
  Serious: Yes (Hospitalization)
  Sender: FDA-Public Use
  Company Number: US-ACTELION-A-US2016-144994

PATIENT
  Age: 63 Year
  Sex: Female
  Weight: 70.3 kg

DRUGS (7)
  1. UPTRAVI [Suspect]
     Active Substance: SELEXIPAG
     Dosage: 800 MCG, BID
     Route: 048
     Dates: start: 20160928
  2. UPTRAVI [Suspect]
     Active Substance: SELEXIPAG
     Indication: PULMONARY ARTERIAL HYPERTENSION
     Dosage: 1600 MCG, BID
     Route: 048
  3. UPTRAVI [Suspect]
     Active Substance: SELEXIPAG
     Dosage: 1000 MCG, BID
     Route: 048
  4. UPTRAVI [Suspect]
     Active Substance: SELEXIPAG
     Dosage: 1200 MCG, BID
     Route: 048
  5. UPTRAVI [Suspect]
     Active Substance: SELEXIPAG
     Dosage: 800 MCG, BID
     Route: 048
  6. REVATIO [Concomitant]
     Active Substance: SILDENAFIL CITRATE
  7. NIFEDIPINE. [Concomitant]
     Active Substance: NIFEDIPINE

REACTIONS (20)
  - Fall [Unknown]
  - Arthralgia [Unknown]
  - Fluid retention [Unknown]
  - Oxygen saturation decreased [Unknown]
  - Headache [Unknown]
  - Swelling [Unknown]
  - Cough [Unknown]
  - Dizziness [Unknown]
  - Fluid overload [Unknown]
  - Pneumonia [Unknown]
  - Vertigo [Unknown]
  - Urinary tract infection [Unknown]
  - Loss of consciousness [Unknown]
  - Dyspnoea [Unknown]
  - Blood creatinine increased [Unknown]
  - Dysphagia [Unknown]
  - Oedema peripheral [Unknown]
  - Malaise [Unknown]
  - Laceration [Unknown]
  - Sputum discoloured [Unknown]
